FAERS Safety Report 5755609-X (Version None)
Quarter: 2008Q2

REPORT INFORMATION
  Report Type: 
  Country: None (occurrence: None)
  Receive Date: 20080602
  Receipt Date: 20080519
  Transmission Date: 20081010
  Serious: Yes (Other)
  Sender: FDA-Public Use
  Company Number: US-JNJFOC-20080403058

PATIENT
  Sex: Male
  Weight: 100.34 kg

DRUGS (11)
  1. TRAMADOL HYDROCHLORIDE [Suspect]
     Dosage: HELD WHILE TAKING PHENERGAN* ORAL
     Route: 048
  2. TRAMADOL HYDROCHLORIDE [Suspect]
     Indication: OSTEOARTHRITIS
     Route: 048
  3. MELOXICAM [Suspect]
     Route: 048
  4. MELOXICAM [Suspect]
     Route: 048
  5. MELOXICAM [Suspect]
     Indication: OSTEOARTHRITIS
     Route: 048
  6. AVALIDE [Concomitant]
     Route: 065
  7. ASTELIN [Concomitant]
     Route: 065
  8. NASALCROM [Concomitant]
     Route: 065
  9. ACETAMINOPHEN [Concomitant]
     Route: 065
  10. PHENERGAN [Concomitant]
     Indication: DRUG USE FOR UNKNOWN INDICATION
     Route: 065
  11. HYDROCODONE [Concomitant]
     Indication: DRUG USE FOR UNKNOWN INDICATION
     Route: 065

REACTIONS (1)
  - BURSITIS [None]
